FAERS Safety Report 6712763-0 (Version None)
Quarter: 2010Q2

REPORT INFORMATION
  Report Type: 
  Country: None (occurrence: None)
  Receive Date: 20100505
  Receipt Date: 20100505
  Transmission Date: 20101027
  Serious: Yes (Other)
  Sender: FDA-Public Use
  Company Number: None

PATIENT
  Sex: Male
  Weight: 73.6 kg

DRUGS (1)
  1. AZOR [Suspect]

REACTIONS (6)
  - DEPRESSION [None]
  - LIBIDO DECREASED [None]
  - REFUSAL OF TREATMENT BY PATIENT [None]
  - THYROID DISORDER [None]
  - VISUAL FIELD DEFECT [None]
  - VISUAL IMPAIRMENT [None]
